FAERS Safety Report 9857049 (Version 1)
Quarter: 2014Q1

REPORT INFORMATION
  Report Type: Spontaneous
  Country: US (occurrence: US)
  Receive Date: 20140130
  Receipt Date: 20140130
  Transmission Date: 20141002
  Serious: Yes (Other)
  Sender: FDA-Public Use
  Company Number: US-PFIZER INC-2014025512

PATIENT
  Sex: Male

DRUGS (1)
  1. TOVIAZ [Suspect]
     Indication: HYPERTONIC BLADDER
     Dosage: UNK

REACTIONS (5)
  - Atrial fibrillation [Unknown]
  - Type 2 diabetes mellitus [Unknown]
  - Depression [Unknown]
  - Memory impairment [Unknown]
  - Drug ineffective [Unknown]
